FAERS Safety Report 7396565-0 (Version None)
Quarter: 2011Q2

REPORT INFORMATION
  Report Type: 
  Country: None (occurrence: None)
  Receive Date: 20110406
  Receipt Date: 20110329
  Transmission Date: 20111010
  Serious: Yes (Hospitalization, Other)
  Sender: FDA-Public Use
  Company Number: US-SANOFI-AVENTIS-2011SA013067

PATIENT
  Age: 69 Year
  Sex: Male
  Weight: 72.73 kg

DRUGS (12)
  1. MULTAQ [Suspect]
     Route: 048
     Dates: start: 20100330, end: 20110310
  2. ASPIRIN [Concomitant]
  3. WELLBUTRIN [Concomitant]
  4. MULTAQ [Suspect]
     Route: 048
     Dates: start: 20110323
  5. VIAGRA [Concomitant]
  6. MULTI-VITAMINS [Concomitant]
  7. MULTAQ [Suspect]
     Route: 048
     Dates: start: 20100330, end: 20110310
  8. VALSARTAN [Concomitant]
  9. ALL OTHER THERAPEUTIC PRODUCTS [Concomitant]
  10. MULTAQ [Suspect]
     Indication: ATRIAL FIBRILLATION
     Route: 048
     Dates: start: 20100319, end: 20100329
  11. MULTAQ [Suspect]
     Indication: CARDIOVERSION
     Route: 048
     Dates: start: 20100319, end: 20100329
  12. MULTAQ [Suspect]
     Route: 048
     Dates: start: 20110323

REACTIONS (6)
  - VENTRICULAR EXTRASYSTOLES [None]
  - SKIN DISCOLOURATION [None]
  - SINUS BRADYCARDIA [None]
  - UNDERDOSE [None]
  - CHILLBLAINS [None]
  - ATRIAL FIBRILLATION [None]
